FAERS Safety Report 20306231 (Version 2)
Quarter: 2022Q1

REPORT INFORMATION
  Report Type: Spontaneous
  Country: HK (occurrence: HK)
  Receive Date: 20220106
  Receipt Date: 20220121
  Transmission Date: 20220424
  Serious: Yes (Hospitalization)
  Sender: FDA-Public Use
  Company Number: HK-TEVA-2021-HK-1995598

PATIENT
  Age: 51 Year
  Sex: Male

DRUGS (5)
  1. TACROLIMUS [Suspect]
     Active Substance: TACROLIMUS
     Indication: Immunosuppressant drug therapy
     Dosage: 1.5 MILLIGRAM DAILY; PROLONGED-RELEASE
     Route: 065
  2. PREDNISOLONE [Suspect]
     Active Substance: PREDNISOLONE
     Indication: Immunosuppressant drug therapy
     Dosage: 6 MILLIGRAM DAILY;
     Route: 048
  3. AMPHOTERICIN B [Suspect]
     Active Substance: AMPHOTERICIN B
     Indication: Pulmonary mucormycosis
     Dosage: 5 MG/KG DAILY;
     Route: 042
     Dates: start: 201203
  4. AMPHOTERICIN B [Suspect]
     Active Substance: AMPHOTERICIN B
     Indication: Disease recurrence
     Dosage: 5 MG/KG DAILY;
     Route: 042
     Dates: start: 202009
  5. POSACONAZOLE [Suspect]
     Active Substance: POSACONAZOLE
     Indication: Pulmonary mucormycosis
     Dosage: 600 MILLIGRAM DAILY;
     Route: 048
     Dates: start: 2012

REACTIONS (6)
  - Pulmonary mucormycosis [Recovering/Resolving]
  - Product prescribing error [Recovering/Resolving]
  - Acute kidney injury [Unknown]
  - Treatment failure [Unknown]
  - Bacterial sepsis [Unknown]
  - Staphylococcal sepsis [Unknown]

NARRATIVE: CASE EVENT DATE: 20200101
